FAERS Safety Report 6902425-9 (Version None)
Quarter: 2010Q3

REPORT INFORMATION
  Report Type: 
  Country: None (occurrence: None)
  Receive Date: 20100802
  Receipt Date: 20100802
  Transmission Date: 20110219
  Serious: Yes (Other)
  Sender: FDA-Public Use
  Company Number: None

PATIENT
  Age: 72 Year
  Sex: Female

DRUGS (1)
  1. OCUFLOX [Suspect]
     Indication: CATARACT
     Dosage: ONE DROP QID TOPICAL EYE DROP
     Route: 061
     Dates: start: 20090705, end: 20090714

REACTIONS (2)
  - OESOPHAGEAL CANDIDIASIS [None]
  - ORAL CANDIDIASIS [None]
